FAERS Safety Report 14614719 (Version 2)
Quarter: 2018Q2

REPORT INFORMATION
  Report Type: Spontaneous
  Country: IT (occurrence: IT)
  Receive Date: 20180308
  Receipt Date: 20180522
  Transmission Date: 20180711
  Serious: Yes (Other)
  Sender: FDA-Public Use
  Company Number: IT-TEVA-2018-IT-864070

PATIENT
  Age: 14 Year
  Sex: Male

DRUGS (25)
  1. DIFLUCAN [Concomitant]
     Active Substance: FLUCONAZOLE
     Dates: start: 20170520, end: 20170522
  2. TACHIPIRINA [Concomitant]
     Active Substance: ACETAMINOPHEN
     Dates: start: 20170523, end: 20170526
  3. ANTRA [Concomitant]
     Active Substance: OMEPRAZOLE
     Route: 042
     Dates: start: 20170520, end: 20170529
  4. ACICLOVIR [Concomitant]
     Active Substance: ACYCLOVIR
     Route: 042
     Dates: start: 20170527, end: 20170626
  5. CLINDAMYCIN. [Concomitant]
     Active Substance: CLINDAMYCIN
     Route: 042
     Dates: start: 20170520, end: 20170617
  6. MERREM [Concomitant]
     Active Substance: MEROPENEM
     Dates: start: 20170520, end: 20170617
  7. CICLOSPORIN [Concomitant]
     Active Substance: CYCLOSPORINE
     Dates: start: 20170527, end: 20170620
  8. FLUDARABINE [Suspect]
     Active Substance: FLUDARABINE PHOSPHATE
     Indication: ALLOGENIC BONE MARROW TRANSPLANTATION THERAPY
     Route: 042
     Dates: start: 20170523, end: 20170526
  9. EMEND [Concomitant]
     Active Substance: APREPITANT
     Dates: start: 20170523, end: 20170525
  10. TRIASPORIN [Concomitant]
     Active Substance: ITRACONAZOLE
     Route: 048
     Dates: start: 20170520, end: 20170522
  11. URSODEOXYCHOLIC ACID [Concomitant]
     Active Substance: URSODIOL
     Dates: start: 20170523, end: 20170626
  12. HEPARIN [Concomitant]
     Active Substance: HEPARIN SODIUM
     Dates: start: 20170523, end: 20170619
  13. METHOTREXATE. [Suspect]
     Active Substance: METHOTREXATE
     Route: 042
     Dates: start: 20170530, end: 20170604
  14. THYMOGLOBULINE [Suspect]
     Active Substance: LAPINE T-LYMPHOCYTE IMMUNE GLOBULIN
     Indication: ALLOGENIC BONE MARROW TRANSPLANTATION THERAPY
     Route: 042
     Dates: start: 20170523, end: 20170526
  15. FUROSEMIDE. [Concomitant]
     Active Substance: FUROSEMIDE
     Route: 042
     Dates: start: 20170523, end: 20170626
  16. BACTRIM [Concomitant]
     Active Substance: SULFAMETHOXAZOLE\TRIMETHOPRIM
     Dates: start: 20170523
  17. PALONOSETRON HYDROCHLORIDE. [Concomitant]
     Active Substance: PALONOSETRON HYDROCHLORIDE
     Dates: start: 20170523
  18. TRIMETON [Concomitant]
     Active Substance: CHLORPHENIRAMINE MALEATE
     Route: 042
     Dates: start: 20170523, end: 20170526
  19. FLUCONAZOLE. [Concomitant]
     Active Substance: FLUCONAZOLE
     Dates: start: 20170523, end: 20170531
  20. MYCOSTATIN 100.000 U.I./ML SOSPENSIONE ORALE [Concomitant]
     Dates: start: 20170520, end: 20170626
  21. UROMITEXAN [Concomitant]
     Active Substance: MESNA
     Dates: start: 20170523, end: 20170526
  22. ENDOXAN BAXTER [Suspect]
     Active Substance: CYCLOPHOSPHAMIDE
     Indication: ALLOGENIC BONE MARROW TRANSPLANTATION THERAPY
     Route: 042
     Dates: start: 20170523, end: 20170526
  23. DIAMINOCILLINA [Concomitant]
     Active Substance: PENICILLIN G BENZATHINE
     Dates: start: 20170522
  24. URBASON [Concomitant]
     Active Substance: METHYLPREDNISOLONE
     Route: 042
     Dates: start: 20170523, end: 20170526
  25. ZOVIRAX [Concomitant]
     Active Substance: ACYCLOVIR
     Route: 042
     Dates: start: 20170520, end: 20170522

REACTIONS (2)
  - Diarrhoea [Recovered/Resolved]
  - Haematochezia [Recovered/Resolved]

NARRATIVE: CASE EVENT DATE: 20170604
